FAERS Safety Report 23007987 (Version 2)
Quarter: 2023Q4

REPORT INFORMATION
  Report Type: Report from Study
  Country: CN (occurrence: CN)
  Receive Date: 20230929
  Receipt Date: 20231016
  Transmission Date: 20240110
  Serious: Yes (Hospitalization)
  Sender: FDA-Public Use
  Company Number: CN-ABBVIE-5427647

PATIENT
  Age: 24 Year
  Sex: Male
  Weight: 72 kg

DRUGS (6)
  1. UPADACITINIB [Suspect]
     Active Substance: UPADACITINIB
     Indication: Dermatitis atopic
     Dosage: FORM STRENGTH- 15 MILLIGRAM?LAST ADMIN DATE- 2023
     Route: 048
     Dates: start: 20230531
  2. UPADACITINIB [Suspect]
     Active Substance: UPADACITINIB
     Indication: Dermatitis atopic
     Dosage: FORM STRENGTH: 15 MILLIGRAM
     Route: 048
     Dates: start: 20231008
  3. .ALPHA.-TOCOPHEROL\ALLANTOIN [Concomitant]
     Active Substance: .ALPHA.-TOCOPHEROL\ALLANTOIN
     Indication: Dermatitis atopic
     Dosage: ALLANTOIN VITAMIN E CREAM, 2 TIMES
     Route: 031
     Dates: start: 20230901
  4. TACROLIMUS [Concomitant]
     Active Substance: TACROLIMUS
     Indication: Dermatitis atopic
     Dosage: 0.1%, 2 TIMES
     Route: 031
     Dates: start: 20230707, end: 20230831
  5. TACROLIMUS [Concomitant]
     Active Substance: TACROLIMUS
     Indication: Dermatitis atopic
     Dosage: 0.03 , 2 TIMES
     Route: 031
     Dates: start: 20230901
  6. Compound Glycyrrhizin [Concomitant]
     Indication: Dermatitis atopic
     Dosage: TIME INTERVAL: 0.33333333 DAYS: 150 MILLIGRAM
     Route: 048
     Dates: start: 20230901

REACTIONS (1)
  - Blister [Not Recovered/Not Resolved]

NARRATIVE: CASE EVENT DATE: 20230925
